FAERS Safety Report 17108865 (Version 2)
Quarter: 2020Q1

REPORT INFORMATION
  Report Type: Report from Study
  Country: US (occurrence: US)
  Receive Date: 20191203
  Receipt Date: 20200131
  Transmission Date: 20200409
  Serious: Yes (Hospitalization)
  Sender: FDA-Public Use
  Company Number: NVSC2019US054722

PATIENT
  Age: 63 Year
  Sex: Male
  Weight: 78.3 kg

DRUGS (3)
  1. KYMRIAH [Suspect]
     Active Substance: TISAGENLECLEUCEL
     Indication: DIFFUSE LARGE B-CELL LYMPHOMA
     Dosage: 0.6X10^8 CAR-POSITIVE VIABLE T-CELLS PER KG
     Route: 065
     Dates: start: 20190911
  2. CYCLOPHOSPHAMIDE. [Concomitant]
     Active Substance: CYCLOPHOSPHAMIDE
     Indication: PRODUCT USED FOR UNKNOWN INDICATION
     Dosage: UNK
     Route: 065
     Dates: start: 20190906
  3. FLUDARABINE [Concomitant]
     Active Substance: FLUDARABINE PHOSPHATE
     Indication: PRODUCT USED FOR UNKNOWN INDICATION
     Dosage: UNK
     Route: 065
     Dates: start: 20190906

REACTIONS (7)
  - Morganella test positive [Unknown]
  - Skin lesion [Not Recovered/Not Resolved]
  - Scab [Recovering/Resolving]
  - Wound infection [Recovering/Resolving]
  - Citrobacter test positive [Unknown]
  - Wound complication [Recovering/Resolving]
  - Skin infection [Not Recovered/Not Resolved]

NARRATIVE: CASE EVENT DATE: 20191018
